FAERS Safety Report 4629036-2 (Version None)
Quarter: 2005Q2

REPORT INFORMATION
  Report Type: 
  Country: None (occurrence: None)
  Receive Date: 20050404
  Receipt Date: 20050404
  Transmission Date: 20051028
  Serious: Yes (Disabling, Other)
  Sender: FDA-Public Use
  Company Number: None

PATIENT
  Age: 53 Year
  Sex: Female
  Weight: 50.8029 kg

DRUGS (6)
  1. LEVAQUIN [Suspect]
     Indication: SINUSITIS
     Dosage: 500 MG/DAY
     Dates: start: 20050211, end: 20050214
  2. ALLEGRA D 24 HOUR [Concomitant]
  3. FLONASE [Concomitant]
  4. TEMAZAPAM [Concomitant]
  5. NORVASC [Concomitant]
  6. .. [Concomitant]

REACTIONS (7)
  - ARTHRALGIA [None]
  - DECREASED ACTIVITY [None]
  - DIFFICULTY IN WALKING [None]
  - PAIN [None]
  - PAIN IN EXTREMITY [None]
  - SLEEP DISORDER [None]
  - SWELLING [None]
